FAERS Safety Report 15125055 (Version 1)
Quarter: 2018Q3

REPORT INFORMATION
  Report Type: Spontaneous
  Country: CN (occurrence: CN)
  Receive Date: 20180710
  Receipt Date: 20180710
  Transmission Date: 20181010
  Serious: Yes (Other)
  Sender: FDA-Public Use
  Company Number: CN-BAYER-2018-123144

PATIENT
  Age: 62 Year
  Sex: Male
  Weight: 50 kg

DRUGS (4)
  1. AMIKACIN SULFATE. [Suspect]
     Active Substance: AMIKACIN SULFATE
     Indication: DRUG THERAPY
     Dosage: 400 MG, QD
     Route: 041
     Dates: start: 20180502, end: 20180510
  2. RIFAPENTINE [Suspect]
     Active Substance: RIFAPENTINE
     Indication: DRUG THERAPY
     Dosage: 450MG 2 DAYS 7 TIMES
     Route: 048
     Dates: start: 20180502, end: 20180510
  3. AVELOX [Suspect]
     Active Substance: MOXIFLOXACIN HYDROCHLORIDE
     Indication: DRUG THERAPY
     Dosage: 400 MG, QD
     Route: 048
     Dates: start: 20180429, end: 20180510
  4. ISONIAZID. [Suspect]
     Active Substance: ISONIAZID
     Indication: DRUG THERAPY
     Dosage: 500 MG, QOD
     Route: 048
     Dates: start: 20180502, end: 20180510

REACTIONS (1)
  - Hepatic lesion [Recovering/Resolving]

NARRATIVE: CASE EVENT DATE: 20180510
